FAERS Safety Report 9163390 (Version 1)
Quarter: 2013Q1

REPORT INFORMATION
  Report Type: Spontaneous
  Country: US (occurrence: None)
  Receive Date: 20130226
  Receipt Date: 20130226
  Transmission Date: 20140127
  Serious: Yes (Other)
  Sender: FDA-Public Use
  Company Number: 2013-03059

PATIENT
  Age: 45 Year
  Sex: Female

DRUGS (17)
  1. OXYCODONE [Suspect]
     Indication: PAIN
  2. LEVOTHYROXINE SODIUM [Suspect]
  3. LEVOTHYROXINE SODIUM [Suspect]
  4. ESOMEPRAZOLE (ESOMEPRAZOLE) [Concomitant]
  5. CHLORTALIDONE (CHLORTALIDONE) [Concomitant]
  6. LOSARTAN (LOSARTAN) [Concomitant]
  7. MONTELUKAST [Concomitant]
  8. FLUTICASONE (FLUTICASONE) [Concomitant]
  9. SALBUTAMOL (SALBUTAMOL) [Concomitant]
  10. AMITRIPTYLINE (AMITRIPTYLINE) [Concomitant]
  11. PRAMIPEXOLE (PRAMIPEXOLE) [Concomitant]
  12. KETAMINE (KETAMINE) [Concomitant]
  13. LIDOCAINE (LIDOCAINE) [Concomitant]
  14. SENNA GLYCOSIDES (SENNA ALEXANDRINA EXTRACT) [Concomitant]
  15. ESZOPICLONE (ESZOPICLONE) [Concomitant]
  16. ERGOCALCIFEROL (ERGOCALCIFEROL) [Concomitant]
  17. DOCUSATE SODIUM (DOCUSATE SODIUM) [Concomitant]

REACTIONS (5)
  - Pain [None]
  - Drug effect decreased [None]
  - Thyroid disorder [None]
  - Drug ineffective [None]
  - Drug interaction [None]
